FAERS Safety Report 10100046 (Version 1)
Quarter: 2014Q2

REPORT INFORMATION
  Report Type: Spontaneous
  Country: US (occurrence: US)
  Receive Date: 20140423
  Receipt Date: 20140423
  Transmission Date: 20141212
  Serious: No
  Sender: FDA-Public Use
  Company Number: US-TARO-2013P1020019

PATIENT
  Sex: Female

DRUGS (1)
  1. NYSTATIN + TRIAMCINOLONE ACETONIDE OINTMENT [Suspect]
     Indication: PRURITUS

REACTIONS (1)
  - Drug ineffective [Not Recovered/Not Resolved]
